FAERS Safety Report 5287274-2 (Version None)
Quarter: 2007Q2

REPORT INFORMATION
  Report Type: 
  Country: None (occurrence: None)
  Receive Date: 20070404
  Receipt Date: 20070327
  Transmission Date: 20071010
  Serious: Yes (Other)
  Sender: FDA-Public Use
  Company Number: CO-PFIZER INC-2007024879

PATIENT
  Age: 70 Year
  Sex: Male

DRUGS (6)
  1. CARDURA [Suspect]
     Indication: BENIGN PROSTATIC HYPERPLASIA
     Route: 048
  2. CARDURA [Suspect]
     Route: 048
  3. ESPIRONOLACTONA [Concomitant]
  4. UNIPRIL [Concomitant]
  5. EUTIROX [Concomitant]
  6. HYDROCHLOROTHIAZIDE [Concomitant]

REACTIONS (1)
  - CARDIAC FAILURE CONGESTIVE [None]
